FAERS Safety Report 11285195 (Version 1)
Quarter: 2015Q3

REPORT INFORMATION
  Report Type: Spontaneous
  Country: US (occurrence: US)
  Receive Date: 20150720
  Receipt Date: 20150720
  Transmission Date: 20151125
  Serious: No
  Sender: FDA-Public Use
  Company Number: US-ELI_LILLY_AND_COMPANY-US201507005927

PATIENT
  Sex: Female

DRUGS (5)
  1. CALCIUM [Concomitant]
     Active Substance: CALCIUM
  2. IRON [Concomitant]
     Active Substance: IRON
  3. FOLIC ACID. [Concomitant]
     Active Substance: FOLIC ACID
  4. FORTEO [Suspect]
     Active Substance: TERIPARATIDE
     Indication: OSTEOPOROSIS
     Dosage: UNK, QD
     Route: 065
     Dates: start: 201502
  5. B12                                /00056201/ [Concomitant]

REACTIONS (5)
  - Asthenia [Unknown]
  - Nausea [Unknown]
  - Mobility decreased [Unknown]
  - Fear of falling [Unknown]
  - Dizziness [Unknown]

NARRATIVE: CASE EVENT DATE: 201502
